APPROVED DRUG PRODUCT: BUPROPION HYDROCHLORIDE
Active Ingredient: BUPROPION HYDROCHLORIDE
Strength: 100MG
Dosage Form/Route: TABLET, EXTENDED RELEASE;ORAL
Application: A091459 | Product #001
Applicant: PH HEALTH LTD
Approved: Jun 9, 2011 | RLD: No | RS: No | Type: DISCN